FAERS Safety Report 4516531-X (Version None)
Quarter: 2004Q4

REPORT INFORMATION
  Report Type: 
  Country: None (occurrence: None)
  Receive Date: 20041029
  Receipt Date: 20040708
  Transmission Date: 20050328
  Serious: No
  Sender: FDA-Public Use
  Company Number: 2004-118327-NL

PATIENT
  Age: 30 Year
  Sex: Female

DRUGS (3)
  1. NUVARING [Suspect]
     Indication: CONTRACEPTION
     Dosage: DF DAILY VAGINAL
     Route: 067
     Dates: start: 20040630
  2. NUVARING [Suspect]
     Indication: DYSMENORRHOEA
     Dosage: DF DAILY VAGINAL
     Route: 067
     Dates: start: 20040630
  3. NUVARING [Suspect]
     Indication: MENORRHAGIA
     Dosage: DF DAILY VAGINAL
     Route: 067
     Dates: start: 20040630

REACTIONS (2)
  - VAGINAL CONTRACEPTIVE DEVICE EXPELLED [None]
  - VULVOVAGINAL DISCOMFORT [None]
